FAERS Safety Report 9523294 (Version 2)
Quarter: 2014Q4

REPORT INFORMATION
  Report Type: Spontaneous
  Country: US (occurrence: US)
  Receive Date: 20130913
  Receipt Date: 20141211
  Transmission Date: 20150529
  Serious: Yes (Hospitalization, Other)
  Sender: FDA-Public Use
  Company Number: US-BAYER-2013-110940

PATIENT
  Age: 36 Year
  Sex: Female
  Weight: 59.32 kg

DRUGS (3)
  1. MIRENA [Suspect]
     Active Substance: LEVONORGESTREL
     Indication: CONTRACEPTION
     Dosage: 20 MCG/24HR, CONT
     Route: 015
     Dates: start: 20110222, end: 20121023
  2. VICODIN [Concomitant]
     Active Substance: ACETAMINOPHEN\HYDROCODONE BITARTRATE
  3. PHENERGAN [Concomitant]
     Active Substance: PROMETHAZINE HYDROCHLORIDE

REACTIONS (16)
  - Medical device discomfort [None]
  - Helicobacter infection [None]
  - Injury [None]
  - Emotional distress [None]
  - Pain [None]
  - Device issue [None]
  - Medical device pain [None]
  - Scar [None]
  - Device failure [None]
  - Depression [None]
  - Anxiety [None]
  - Fatigue [None]
  - Malaise [None]
  - Uterine perforation [None]
  - Embedded device [None]
  - Procedural pain [None]

NARRATIVE: CASE EVENT DATE: 2012
